FAERS Safety Report 4884159-8 (Version None)
Quarter: 2006Q1

REPORT INFORMATION
  Report Type: 
  Country: None (occurrence: None)
  Receive Date: 20060118
  Receipt Date: 20050324
  Transmission Date: 20060701
  Serious: Yes (Hospitalization, Disabling)
  Sender: FDA-Public Use
  Company Number: US-MERCK-0503USA04625

PATIENT
  Age: 56 Year
  Sex: Female
  Weight: 95 kg

DRUGS (2)
  1. VIOXX [Suspect]
     Indication: PAIN IN EXTREMITY
     Route: 048
     Dates: start: 20000201, end: 20040901
  2. TAMOXIFEN CITRATE [Concomitant]
     Route: 065

REACTIONS (7)
  - ANKLE OPERATION [None]
  - ARTHROPATHY [None]
  - CEREBRAL HAEMORRHAGE [None]
  - HAEMORRHAGIC CEREBRAL INFARCTION [None]
  - HAEMORRHAGIC INFARCTION [None]
  - MENISCUS LESION [None]
  - WEIGHT INCREASED [None]
